FAERS Safety Report 24803615 (Version 1)
Quarter: 2025Q1

REPORT INFORMATION
  Report Type: Spontaneous
  Country: US (occurrence: US)
  Receive Date: 20250103
  Receipt Date: 20250103
  Transmission Date: 20250409
  Serious: Yes (Other)
  Sender: STRIDES
  Company Number: US-STRIDES ARCOLAB LIMITED-2025SP000034

PATIENT
  Age: 61 Year
  Sex: Female

DRUGS (1)
  1. METHOTREXATE [Suspect]
     Active Substance: METHOTREXATE
     Indication: Crohn^s disease
     Route: 065

REACTIONS (6)
  - Hyperbilirubinaemia [Unknown]
  - Jaundice [Unknown]
  - Hepatic cirrhosis [Not Recovered/Not Resolved]
  - Ascites [Unknown]
  - Gastric varices haemorrhage [Unknown]
  - Off label use [Unknown]
